FAERS Safety Report 26209337 (Version 1)
Quarter: 2025Q4

REPORT INFORMATION
  Report Type: Spontaneous
  Country: JP (occurrence: JP)
  Receive Date: 20251229
  Receipt Date: 20251229
  Transmission Date: 20260118
  Serious: Yes (Hospitalization)
  Sender: NOVO NORDISK
  Company Number: JP-NOVOPROD-1593635

PATIENT
  Age: 32 Year
  Sex: Female

DRUGS (3)
  1. LEVEMIR [Suspect]
     Active Substance: INSULIN DETEMIR
     Indication: Gestational diabetes
     Dosage: 4 IU, QD
     Route: 058
     Dates: start: 20251031
  2. LEVEMIR [Suspect]
     Active Substance: INSULIN DETEMIR
     Dosage: UNK,DOSE INCREASED
     Route: 058
     Dates: start: 20251210
  3. LEVEMIR [Suspect]
     Active Substance: INSULIN DETEMIR
     Dosage: 7 IU, QD
     Route: 058

REACTIONS (3)
  - Threatened labour [Unknown]
  - Injection site rash [Recovered/Resolved]
  - Maternal exposure during pregnancy [Unknown]

NARRATIVE: CASE EVENT DATE: 20251031
